FAERS Safety Report 23955035 (Version 2)
Quarter: 2024Q2

REPORT INFORMATION
  Report Type: Spontaneous
  Country: CN (occurrence: CN)
  Receive Date: 20240610
  Receipt Date: 20240617
  Transmission Date: 20240716
  Serious: Yes (Life-Threatening)
  Sender: FDA-Public Use
  Company Number: CN-AMGEN-CHNSP2024111178

PATIENT
  Age: 58 Year
  Sex: Male
  Weight: 63 kg

DRUGS (2)
  1. XGEVA [Suspect]
     Active Substance: DENOSUMAB
     Indication: Gastric cancer
     Dosage: 120 MILLIGRAM
     Route: 058
     Dates: start: 20240426, end: 20240426
  2. CALCIUM GLUCONATE [Concomitant]
     Active Substance: CALCIUM GLUCONATE
     Indication: Hypocalcaemia
     Dosage: 2 GRAM, BID

REACTIONS (1)
  - Calcium deficiency [Recovering/Resolving]

NARRATIVE: CASE EVENT DATE: 20240513
